FAERS Safety Report 5032595-1 (Version None)
Quarter: 2006Q2

REPORT INFORMATION
  Report Type: 
  Country: None (occurrence: None)
  Receive Date: 20060620
  Receipt Date: 20060601
  Transmission Date: 20061013
  Serious: Yes (Hospitalization, Other)
  Sender: FDA-Public Use
  Company Number: US200603004297

PATIENT
  Age: 14 Year
  Sex: Male
  Weight: 72.1 kg

DRUGS (2)
  1. HUMATROPE [Suspect]
     Dosage: 0.36 MG, OTHER, SUBCUTANEOUS
     Route: 058
     Dates: start: 19960501, end: 20060224
  2. SYNTHROID [Concomitant]

REACTIONS (14)
  - ASTHENIA [None]
  - BONE SARCOMA [None]
  - CONVULSION [None]
  - DECREASED APPETITE [None]
  - DROOLING [None]
  - FALL [None]
  - FEBRILE NEUTROPENIA [None]
  - HEAD INJURY [None]
  - HEADACHE [None]
  - HEMIPARESIS [None]
  - MUSCLE CONTRACTURE [None]
  - MUSCULAR WEAKNESS [None]
  - SOMNOLENCE [None]
  - VIITH NERVE PARALYSIS [None]
